FAERS Safety Report 18156830 (Version 1)
Quarter: 2020Q3

REPORT INFORMATION
  Report Type: Spontaneous
  Country: US (occurrence: US)
  Receive Date: 20200817
  Receipt Date: 20200817
  Transmission Date: 20201103
  Serious: No
  Sender: FDA-Public Use
  Company Number: None

PATIENT
  Age: 78 Year
  Sex: Male

DRUGS (18)
  1. METOPROLOL TARTRATE 100MG [Concomitant]
     Active Substance: METOPROLOL TARTRATE
     Dates: start: 20200306
  2. URSODIOL 300MG [Concomitant]
     Dates: start: 20200306
  3. BROVANA [Concomitant]
     Active Substance: ARFORMOTEROL TARTRATE
     Dates: start: 20200306
  4. GIMEPRIMIDE 4MG [Concomitant]
     Dates: start: 20200306
  5. RAYALDEE [Suspect]
     Active Substance: CALCIFEDIOL
     Indication: SECONDARY HYPERTHYROIDISM
     Route: 048
     Dates: start: 20200602
  6. FINASTERIDE 5MG [Concomitant]
     Active Substance: FINASTERIDE
     Dates: start: 20200306
  7. FUROSEMIDE 40MG [Concomitant]
     Active Substance: FUROSEMIDE
     Dates: start: 20200306
  8. RAMEXA 500MG [Concomitant]
     Dates: start: 20200306
  9. AMLODIPINE [Concomitant]
     Active Substance: AMLODIPINE BESYLATE
     Dates: start: 20200306
  10. ATORVASTATIN 40MG [Concomitant]
     Active Substance: ATORVASTATIN
     Dates: start: 20200306
  11. GABAPENTIN 100MG [Concomitant]
     Active Substance: GABAPENTIN
     Dates: start: 20200306
  12. GEMFIBRAZOL 600MG [Concomitant]
     Dates: start: 20200306
  13. HYDRALAZINE 100MG [Concomitant]
     Active Substance: HYDRALAZINE HYDROCHLORIDE
     Dates: start: 20200306
  14. MONTELUKAST [Concomitant]
     Active Substance: MONTELUKAST SODIUM
     Dates: start: 20200306
  15. POTASSIUM 20MEQ [Concomitant]
     Dates: start: 20200306
  16. TAMSULOSIN 0.4MG [Concomitant]
     Active Substance: TAMSULOSIN
     Dates: start: 20200306
  17. ISOSORBIDE MON 60MG [Concomitant]
     Dates: start: 20200306
  18. PLAVIX [Concomitant]
     Active Substance: CLOPIDOGREL BISULFATE
     Dates: start: 20200306

REACTIONS (2)
  - Fatigue [None]
  - Asthenia [None]

NARRATIVE: CASE EVENT DATE: 20200817
